FAERS Safety Report 16869831 (Version 4)
Quarter: 2023Q2

REPORT INFORMATION
  Report Type: Spontaneous
  Country: US (occurrence: US)
  Receive Date: 20190930
  Receipt Date: 20230508
  Transmission Date: 20230722
  Serious: Yes (Hospitalization, Other)
  Sender: FDA-Public Use
  Company Number: US-SA-2019SA267246

PATIENT
  Age: 72 Year
  Sex: Female

DRUGS (20)
  1. DUPIXENT [Suspect]
     Active Substance: DUPILUMAB
     Indication: Dermatitis atopic
     Dosage: 300 MG, QOW
     Route: 058
     Dates: start: 20190719
  2. DUPIXENT [Suspect]
     Active Substance: DUPILUMAB
     Dosage: 300 MG, OTHER
     Route: 058
     Dates: start: 202211
  3. REPATHA [Suspect]
     Active Substance: EVOLOCUMAB
  4. ASPIRIN [Concomitant]
     Active Substance: ASPIRIN
  5. BRILINTA [Concomitant]
     Active Substance: TICAGRELOR
  6. LEVOTHYROXINE [Concomitant]
     Active Substance: LEVOTHYROXINE
  7. LIDOCAINE [Concomitant]
     Active Substance: LIDOCAINE
  8. PRILOCAINE [Concomitant]
     Active Substance: PRILOCAINE
  9. ALPRAZOLAM [Concomitant]
     Active Substance: ALPRAZOLAM
  10. CYANOCOBALAMIN [Concomitant]
     Active Substance: CYANOCOBALAMIN
  11. FINASTERIDE [Concomitant]
     Active Substance: FINASTERIDE
  12. AMOXICILLIN [Concomitant]
     Active Substance: AMOXICILLIN
  13. BACITRACIN [Concomitant]
     Active Substance: BACITRACIN
  14. DUREZOL [Concomitant]
     Active Substance: DIFLUPREDNATE
  15. EPINEPHRINE [Concomitant]
     Active Substance: EPINEPHRINE
  16. MOXIFLOXACIN [Concomitant]
     Active Substance: MOXIFLOXACIN
  17. POLYMYXIN [Concomitant]
     Active Substance: POLYMYXIN
  18. PROLENSA [Concomitant]
     Active Substance: BROMFENAC SODIUM
  19. TACROLIMUS [Concomitant]
     Active Substance: TACROLIMUS
  20. BETAMETHASONE DIPROPIONATE AUGMENTED [Concomitant]
     Active Substance: BETAMETHASONE DIPROPIONATE

REACTIONS (7)
  - Myocardial infarction [Recovered/Resolved]
  - Injection site pain [Not Recovered/Not Resolved]
  - Injection site pain [Unknown]
  - Alopecia [Not Recovered/Not Resolved]
  - Weight increased [Unknown]
  - Rash macular [Unknown]
  - Therapeutic response shortened [Unknown]

NARRATIVE: CASE EVENT DATE: 20200111
